FAERS Safety Report 9831304 (Version 1)
Quarter: 2014Q1

REPORT INFORMATION
  Report Type: Spontaneous
  Country: US (occurrence: US)
  Receive Date: 20140121
  Receipt Date: 20140121
  Transmission Date: 20141002
  Serious: No
  Sender: FDA-Public Use
  Company Number: US-BIOGENIDEC-2014BI005580

PATIENT
  Age: 42 Year
  Sex: Male

DRUGS (1)
  1. TYSABRI [Suspect]
     Indication: MULTIPLE SCLEROSIS
     Route: 042
     Dates: start: 20091211

REACTIONS (6)
  - Feeling abnormal [Recovered/Resolved with Sequelae]
  - Seborrhoea [Recovered/Resolved with Sequelae]
  - Multiple sclerosis [Not Recovered/Not Resolved]
  - Malaise [Recovered/Resolved with Sequelae]
  - Rash [Recovered/Resolved with Sequelae]
  - Sinusitis [Recovered/Resolved with Sequelae]
